FAERS Safety Report 7475815-6 (Version None)
Quarter: 2011Q2

REPORT INFORMATION
  Report Type: 
  Country: None (occurrence: None)
  Receive Date: 20110512
  Receipt Date: 20110503
  Transmission Date: 20111010
  Serious: Yes (Death, Hospitalization)
  Sender: FDA-Public Use
  Company Number: 2008BI026101

PATIENT
  Age: 51 Year
  Sex: Female

DRUGS (5)
  1. TYSABRI [Suspect]
     Indication: MULTIPLE SCLEROSIS
     Route: 042
     Dates: start: 20080508, end: 20080807
  2. PLAVIX [Concomitant]
  3. IRON [Concomitant]
  4. VITAMIN B [Concomitant]
  5. MULTI-VITAMIN [Concomitant]

REACTIONS (2)
  - ISCHAEMIC CARDIOMYOPATHY [None]
  - MULTIPLE SCLEROSIS [None]
